FAERS Safety Report 17913704 (Version 7)
Quarter: 2020Q3

REPORT INFORMATION
  Report Type: Spontaneous
  Country: US (occurrence: US)
  Receive Date: 20200618
  Receipt Date: 20200811
  Transmission Date: 20201103
  Serious: Yes (Hospitalization, Other)
  Sender: FDA-Public Use
  Company Number: US-UNITED THERAPEUTICS-UNT-2020-008331

PATIENT
  Age: 76 Year
  Sex: Female
  Weight: 43.08 kg

DRUGS (6)
  1. REMODULIN [Suspect]
     Active Substance: TREPROSTINIL
     Dosage: 0.019 ?G/KG, CONTINUING
     Route: 058
     Dates: start: 2020
  2. REMODULIN [Suspect]
     Active Substance: TREPROSTINIL
     Dosage: 0.035 ?G/KG, CONTINUING
     Route: 058
     Dates: start: 2020
  3. WARFARIN [Concomitant]
     Active Substance: WARFARIN
     Indication: PRODUCT USED FOR UNKNOWN INDICATION
     Dosage: UNK
     Route: 065
  4. REMODULIN [Suspect]
     Active Substance: TREPROSTINIL
     Dosage: 0.021 ?G/KG, CONTINUING
     Route: 058
     Dates: start: 2020
  5. REMODULIN [Suspect]
     Active Substance: TREPROSTINIL
     Indication: PULMONARY ARTERIAL HYPERTENSION
     Dosage: UNK, CONTINUING
     Route: 058
     Dates: start: 20200414
  6. TADALAFIL. [Concomitant]
     Active Substance: TADALAFIL
     Indication: PRODUCT USED FOR UNKNOWN INDICATION
     Dosage: UNK
     Route: 065

REACTIONS (11)
  - Infusion site swelling [Unknown]
  - Pulmonary oedema [Unknown]
  - Right ventricular failure [Unknown]
  - Infusion site pain [Unknown]
  - Infusion site erythema [Unknown]
  - Device adhesion issue [Unknown]
  - Pneumonia [Recovering/Resolving]
  - Dyspnoea [Unknown]
  - Diarrhoea [Unknown]
  - Atrial pressure increased [Unknown]
  - Oxygen saturation decreased [Unknown]

NARRATIVE: CASE EVENT DATE: 2020
